FAERS Safety Report 16647035 (Version 1)
Quarter: 2019Q3

REPORT INFORMATION
  Report Type: Spontaneous
  Country: US (occurrence: US)
  Receive Date: 20190730
  Receipt Date: 20190730
  Transmission Date: 20191004
  Serious: No
  Sender: FDA-Public Use
  Company Number: US-009507513-1907USA004180

PATIENT
  Age: 23 Year
  Sex: Female
  Weight: 151.02 kg

DRUGS (1)
  1. NEXPLANON [Suspect]
     Active Substance: ETONOGESTREL
     Dosage: ONE ROD EVERY THREE YEARS; INSERTED INTO LEFT UPPER ARM
     Route: 059
     Dates: start: 20170522

REACTIONS (3)
  - Complication associated with device [Not Recovered/Not Resolved]
  - Menstruation normal [Unknown]
  - Amenorrhoea [Unknown]

NARRATIVE: CASE EVENT DATE: 2017
